FAERS Safety Report 21085574 (Version 1)
Quarter: 2022Q3

REPORT INFORMATION
  Report Type: Report from Study
  Country: CO (occurrence: CO)
  Receive Date: 20220715
  Receipt Date: 20220715
  Transmission Date: 20221026
  Serious: Yes (Hospitalization)
  Sender: FDA-Public Use
  Company Number: CO-JNJFOC-20220710885

PATIENT
  Age: 63 Year
  Sex: Male
  Weight: 52 kg

DRUGS (1)
  1. IMBRUVICA [Suspect]
     Active Substance: IBRUTINIB
     Indication: Mantle cell lymphoma
     Route: 048
     Dates: start: 20210724

REACTIONS (1)
  - Colostomy closure [Not Recovered/Not Resolved]

NARRATIVE: CASE EVENT DATE: 20220628
